FAERS Safety Report 19519929 (Version 3)
Quarter: 2021Q4

REPORT INFORMATION
  Report Type: Report from Study
  Country: US (occurrence: US)
  Receive Date: 20210712
  Receipt Date: 20211202
  Transmission Date: 20220303
  Serious: No
  Sender: FDA-Public Use
  Company Number: NVSC2021US021551

PATIENT
  Sex: Female

DRUGS (1)
  1. ENTRESTO [Suspect]
     Active Substance: SACUBITRIL\VALSARTAN
     Indication: Product used for unknown indication
     Dosage: UNK UNK, BID
     Route: 048
     Dates: start: 202012

REACTIONS (9)
  - Arthralgia [Unknown]
  - Fear [Unknown]
  - Weight decreased [Unknown]
  - Poor quality sleep [Unknown]
  - Decreased activity [Unknown]
  - Pruritus [Unknown]
  - No adverse event [Unknown]
  - Incorrect dose administered [Unknown]
  - Product dose omission issue [Unknown]
